FAERS Safety Report 4554157-2 (Version None)
Quarter: 2005Q1

REPORT INFORMATION
  Report Type: 
  Country: None (occurrence: None)
  Receive Date: 20050118
  Receipt Date: 20050111
  Transmission Date: 20050727
  Serious: Yes (Life-Threatening, Hospitalization)
  Sender: FDA-Public Use
  Company Number: US-MERCK-0501USA01019

PATIENT
  Age: 63 Year
  Sex: Female

DRUGS (14)
  1. SINGULAIR [Suspect]
     Route: 048
     Dates: start: 20040224, end: 20040921
  2. ZYRTEC [Concomitant]
     Route: 065
  3. ALBUTEROL [Concomitant]
     Route: 065
  4. ADVAIR DISKUS 100/50 [Concomitant]
     Route: 065
  5. OXYCONTIN [Concomitant]
     Route: 065
  6. PREVACID [Concomitant]
     Route: 065
  7. TOPROL-XL [Concomitant]
     Route: 065
  8. CLONIDINE [Concomitant]
     Route: 065
  9. PROCARDIA [Concomitant]
     Route: 065
  10. GABAPENTIN [Concomitant]
     Route: 065
  11. MAXZIDE [Concomitant]
     Route: 065
  12. POTASSIUM (UNSPECIFIED) [Concomitant]
     Route: 065
  13. FLEXERIL [Concomitant]
     Route: 048
  14. VICODIN [Concomitant]
     Route: 065

REACTIONS (1)
  - CARDIO-RESPIRATORY ARREST [None]
